FAERS Safety Report 25021098 (Version 2)
Quarter: 2025Q2

REPORT INFORMATION
  Report Type: Spontaneous
  Country: US (occurrence: US)
  Receive Date: 20250228
  Receipt Date: 20250408
  Transmission Date: 20250717
  Serious: No
  Sender: ROCHE
  Company Number: US-ROCHE-10000215942

PATIENT
  Sex: Female

DRUGS (9)
  1. ACTEMRA [Suspect]
     Active Substance: TOCILIZUMAB
     Indication: Rheumatoid arthritis
     Dosage: 0.9 ML
     Route: 058
     Dates: start: 20220407
  2. ACTEMRA [Suspect]
     Active Substance: TOCILIZUMAB
  3. ATORVASTATIN TAB 20MG [Concomitant]
  4. CYCLOBENZAPR TAB 10MG [Concomitant]
  5. OMEPRAZOLE CPD 20MG [Concomitant]
  6. OXYBUTYNIN C TB2 10MG [Concomitant]
  7. TRIAMTERENE-CAP 37.5-25M [Concomitant]
  8. VENLAFAXINE CP2 75MG [Concomitant]
  9. MELOXICAM [Concomitant]
     Active Substance: MELOXICAM

REACTIONS (2)
  - Injection site pain [Not Recovered/Not Resolved]
  - Injection site inflammation [Not Recovered/Not Resolved]
